FAERS Safety Report 12527051 (Version 1)
Quarter: 2016Q3

REPORT INFORMATION
  Report Type: Spontaneous
  Country: FR (occurrence: FR)
  Receive Date: 20160705
  Receipt Date: 20160705
  Transmission Date: 20161109
  Serious: Yes (Life-Threatening, Hospitalization, Other)
  Sender: FDA-Public Use
  Company Number: FR-GLAXOSMITHKLINE-FR2016095079

PATIENT
  Age: 28 Year
  Sex: Female

DRUGS (29)
  1. KETOPROFENE [Suspect]
     Active Substance: KETOPROFEN
     Indication: PRODUCT USED FOR UNKNOWN INDICATION
     Dosage: 800 MG, TOTAL (100 MG 8 TABLETS )
     Route: 048
     Dates: start: 20160115, end: 20160117
  2. NALTREXONE [Suspect]
     Active Substance: NALTREXONE
     Indication: PRODUCT USED FOR UNKNOWN INDICATION
     Dosage: 1400 MG, TOTAL (50 MG 28 TABLETS )
     Route: 048
     Dates: start: 20160115, end: 20160117
  3. PYOSTACINE [Suspect]
     Active Substance: PRISTINAMYCIN
     Indication: PRODUCT USED FOR UNKNOWN INDICATION
     Dosage: 10000 MG, TOTAL (500 MG 20 TABLETS )
     Route: 048
     Dates: start: 20160115, end: 20160117
  4. DOLIPRANE [Suspect]
     Active Substance: ACETAMINOPHEN
     Indication: PRODUCT USED FOR UNKNOWN INDICATION
     Dosage: 8000 MG, TOTAL (1000 MG 8 TABLETS )
     Route: 048
  5. ATARAX [Suspect]
     Active Substance: HYDROXYZINE\HYDROXYZINE HYDROCHLORIDE
     Indication: PRODUCT USED FOR UNKNOWN INDICATION
     Dosage: 525 MG, TOTAL (25 MG: 21 TABLETS )
     Route: 048
     Dates: start: 20160115, end: 20160117
  6. ZOPICLONE [Suspect]
     Active Substance: ZOPICLONE
     Indication: PRODUCT USED FOR UNKNOWN INDICATION
     Dosage: 82.5 MG, TOTAL (7.5 MG: 11 TABLETS)
     Route: 048
     Dates: start: 20160115, end: 20160117
  7. DAFLON [Suspect]
     Active Substance: DIOSMIN\HESPERIDIN
     Indication: PRODUCT USED FOR UNKNOWN INDICATION
     Dosage: 59500 MG, TOTAL (700 MG 85 TABLETS )
     Route: 048
     Dates: start: 20160115, end: 20160117
  8. SODIUM CHLORIDE. [Concomitant]
     Active Substance: SODIUM CHLORIDE
     Indication: HAEMODYNAMIC INSTABILITY
     Dosage: UNK
  9. KEPPRA [Suspect]
     Active Substance: LEVETIRACETAM
     Indication: PRODUCT USED FOR UNKNOWN INDICATION
     Dosage: 500 MG, 2X/DAY (BID)
     Dates: start: 201601, end: 20160122
  10. KETUM [Suspect]
     Active Substance: KETOPROFEN
     Indication: PRODUCT USED FOR UNKNOWN INDICATION
     Dosage: 900 MG, TOTAL (100 MG 9 TABLETS )
  11. FLUIMUCIL [Concomitant]
     Active Substance: ACETYLCYSTEINE
     Indication: PRODUCT USED FOR UNKNOWN INDICATION
     Dosage: UNK
  12. VENLAFAXINE [Suspect]
     Active Substance: VENLAFAXINE HYDROCHLORIDE
     Indication: PRODUCT USED FOR UNKNOWN INDICATION
     Dosage: 5925 MG, TOTAL (75 MG:79 TABLETS )
     Route: 048
     Dates: start: 20160115, end: 20160117
  13. GARDENAL [Concomitant]
     Active Substance: PHENOBARBITAL
     Dosage: MAINTENACE DOSE
  14. ALPRAZOLAM. [Suspect]
     Active Substance: ALPRAZOLAM
     Indication: PRODUCT USED FOR UNKNOWN INDICATION
     Dosage: 17 MG, TOTAL (0.25 MG: 68 TABLETS)
     Route: 048
     Dates: start: 20160115, end: 20160117
  15. VERATRAN [Suspect]
     Active Substance: CLOTIAZEPAM
     Indication: PRODUCT USED FOR UNKNOWN INDICATION
     Dosage: 90 MG, TOTAL (10 MG: 9 TABLETS )
     Route: 048
     Dates: start: 20160115, end: 20160117
  16. OMEPRAZOLE. [Suspect]
     Active Substance: OMEPRAZOLE
     Indication: PRODUCT USED FOR UNKNOWN INDICATION
     Dosage: 100 MG, TOTAL (20 MG 5 TABLETS)
     Route: 048
     Dates: start: 20160115, end: 20160117
  17. XEROQUEL [Suspect]
     Active Substance: QUETIAPINE FUMARATE
     Indication: PRODUCT USED FOR UNKNOWN INDICATION
     Dosage: 13200 MG, TOTAL (300 MG 44 TABLETS )
     Route: 048
  18. ASPIRIN. [Suspect]
     Active Substance: ASPIRIN
     Indication: PRODUCT USED FOR UNKNOWN INDICATION
     Dosage: 1400 MG, TOTAL (1000 MG 14 TABLETS )
     Route: 048
     Dates: start: 20160114, end: 20160117
  19. CELOCURINE [Concomitant]
     Active Substance: SUCCINYLCHOLINE CHLORIDE
     Indication: ALTERED STATE OF CONSCIOUSNESS
     Dosage: UNK
  20. GARDENAL [Concomitant]
     Active Substance: PHENOBARBITAL
     Indication: STATUS EPILEPTICUS
     Dosage: LOADING DOSE
  21. ZYRTEC [Suspect]
     Active Substance: CETIRIZINE HYDROCHLORIDE
     Indication: PRODUCT USED FOR UNKNOWN INDICATION
     Dosage: 150 MG, TOTAL (10 MG 15 TABLETS )
     Route: 048
     Dates: start: 20160115, end: 20160117
  22. BACLOFEN. [Suspect]
     Active Substance: BACLOFEN
     Indication: PRODUCT USED FOR UNKNOWN INDICATION
     Dosage: 960 MG, TOTAL (10 MG: 96 TABLETS )
     Route: 048
     Dates: start: 20160115, end: 20160117
  23. SULFARLEM [Suspect]
     Active Substance: ANETHOLTRITHION
     Indication: PRODUCT USED FOR UNKNOWN INDICATION
     Dosage: 3750 MG, TOTAL (25 MG 150 TABLETS )
     Route: 048
     Dates: start: 20160115, end: 20160117
  24. RIVOTRIL [Concomitant]
     Active Substance: CLONAZEPAM
     Indication: GENERALISED TONIC-CLONIC SEIZURE
     Dosage: UNK
     Route: 042
  25. URBANYL [Concomitant]
     Active Substance: CLOBAZAM
     Indication: PRODUCT USED FOR UNKNOWN INDICATION
     Dosage: UNK
  26. THERALENE [Suspect]
     Active Substance: TRIMEPRAZINE
     Indication: PRODUCT USED FOR UNKNOWN INDICATION
     Dosage: 215 MG, TOTAL (5 MG: 43 TABLETS )
     Dates: start: 20160115, end: 20160117
  27. ETOMIDATE. [Concomitant]
     Active Substance: ETOMIDATE
     Indication: ALTERED STATE OF CONSCIOUSNESS
     Dosage: UNK
  28. IBUPROFEN. [Suspect]
     Active Substance: IBUPROFEN
     Indication: PRODUCT USED FOR UNKNOWN INDICATION
     Dosage: 4800 MG, TOTAL (400 MG 12 TABLETS )
     Route: 048
     Dates: start: 20160115, end: 20160117
  29. SPASFON [Suspect]
     Active Substance: PHLOROGLUCINOL
     Indication: PRODUCT USED FOR UNKNOWN INDICATION
     Dosage: 1600 MG, TOTAL (80 MG 20 TABLETS)
     Route: 048

REACTIONS (6)
  - Electrocardiogram QT prolonged [Recovered/Resolved]
  - Hepatocellular injury [Recovered/Resolved]
  - Poisoning deliberate [Recovered/Resolved]
  - Intentional overdose [Unknown]
  - Coma [Recovered/Resolved]
  - Status epilepticus [Recovered/Resolved]

NARRATIVE: CASE EVENT DATE: 201601
